FAERS Safety Report 21501448 (Version 1)
Quarter: 2022Q4

REPORT INFORMATION
  Report Type: Spontaneous
  Country: US (occurrence: US)
  Receive Date: 20221025
  Receipt Date: 20221025
  Transmission Date: 20230112
  Serious: Yes (Other)
  Sender: FDA-Public Use
  Company Number: US-NOVOPROD-969853

PATIENT
  Sex: Female

DRUGS (1)
  1. NOVOLOG [Suspect]
     Active Substance: INSULIN ASPART
     Indication: Type 2 diabetes mellitus
     Dosage: 40 UNITS
     Route: 058

REACTIONS (3)
  - Macular degeneration [Recovered/Resolved]
  - Retinal aneurysm [Recovered/Resolved]
  - Blood glucose increased [Unknown]
